FAERS Safety Report 4860606-2 (Version None)
Quarter: 2005Q4

REPORT INFORMATION
  Report Type: 
  Country: None (occurrence: None)
  Receive Date: 20051219
  Receipt Date: 20050817
  Transmission Date: 20060501
  Serious: Yes (Hospitalization, Disabling)
  Sender: FDA-Public Use
  Company Number: AU-MERCK-0508AUS00092

PATIENT
  Age: 75 Year
  Sex: Male
  Weight: 70 kg

DRUGS (6)
  1. CLOPIDOGREL BISULFATE [Concomitant]
     Indication: PROPHYLAXIS
     Route: 065
     Dates: start: 20000801
  2. ZETIA [Suspect]
     Indication: HYPERLIPIDAEMIA
     Route: 048
     Dates: start: 20040801, end: 20050701
  3. ZOCOR [Concomitant]
     Indication: PROPHYLAXIS
     Route: 048
     Dates: start: 20000801
  4. ASPIRIN [Concomitant]
     Indication: PROPHYLAXIS
     Route: 065
     Dates: start: 20000801
  5. RAMIPRIL [Concomitant]
     Indication: PROPHYLAXIS
     Route: 065
     Dates: start: 20000801
  6. CARVEDILOL [Concomitant]
     Indication: PROPHYLAXIS
     Route: 065
     Dates: start: 20000801

REACTIONS (1)
  - PEMPHIGOID [None]
